FAERS Safety Report 18103341 (Version 5)
Quarter: 2025Q4

REPORT INFORMATION
  Report Type: Report from Study
  Country: US (occurrence: US)
  Receive Date: 20200803
  Receipt Date: 20251216
  Transmission Date: 20260117
  Serious: No
  Sender: PFIZER
  Company Number: US-PFIZER INC-2020176197

PATIENT
  Age: 49 Year
  Sex: Male

DRUGS (4)
  1. XELJANZ [Suspect]
     Active Substance: TOFACITINIB CITRATE
     Indication: Rheumatoid arthritis
     Dosage: 5 MG, 2X/DAY
     Route: 048
     Dates: start: 20200428
  2. XELJANZ [Suspect]
     Active Substance: TOFACITINIB CITRATE
     Indication: Pain
     Dosage: 5 MG, 1X/DAY
     Route: 048
  3. XELJANZ [Suspect]
     Active Substance: TOFACITINIB CITRATE
     Dosage: 5 MG, 2X/DAY
     Route: 048
  4. XELJANZ [Suspect]
     Active Substance: TOFACITINIB CITRATE
     Dosage: 5 MG, 2X/DAY
     Route: 048

REACTIONS (4)
  - Blood cholesterol increased [Unknown]
  - Disturbance in attention [Unknown]
  - Product dose omission in error [Unknown]
  - Off label use [Unknown]

NARRATIVE: CASE EVENT DATE: 20200101
